FAERS Safety Report 16720367 (Version 1)
Quarter: 2019Q4

REPORT INFORMATION
  Report Type: Spontaneous
  Country: US (occurrence: US)
  Receive Date: 20190819
  Receipt Date: 20190819
  Transmission Date: 20200122
  Serious: Yes (Disabling)
  Sender: FDA-Public Use
  Company Number: None

PATIENT
  Age: 22 Year
  Sex: Male
  Weight: 85.5 kg

DRUGS (1)
  1. FINASTERIDE. [Suspect]
     Active Substance: FINASTERIDE
     Indication: ANDROGENETIC ALOPECIA
     Dosage: ?          QUANTITY:90 TABLET(S);?
     Route: 048

REACTIONS (7)
  - Ejaculation failure [None]
  - Loss of libido [None]
  - Depression [None]
  - Erectile dysfunction [None]
  - Suicidal ideation [None]
  - Testicular pain [None]
  - Gynaecomastia [None]

NARRATIVE: CASE EVENT DATE: 20190514
